FAERS Safety Report 4269960-6 (Version None)
Quarter: 2004Q1

REPORT INFORMATION
  Report Type: 
  Country: None (occurrence: None)
  Receive Date: 20040114
  Receipt Date: 20031124
  Transmission Date: 20041129
  Serious: Yes (Hospitalization)
  Sender: FDA-Public Use
  Company Number: PHRM2003FR03181

PATIENT
  Age: 71 Year
  Sex: Female

DRUGS (1)
  1. LESCOL [Suspect]
     Indication: HYPERCHOLESTEROLAEMIA
     Dosage: 80 MG, QD
     Route: 048
     Dates: start: 20031001, end: 20031015

REACTIONS (4)
  - ABSCESS INTESTINAL [None]
  - DIVERTICULUM [None]
  - FATIGUE [None]
  - HEPATIC ENZYME INCREASED [None]
